FAERS Safety Report 9694993 (Version 2)
Quarter: 2013Q4

REPORT INFORMATION
  Report Type: Spontaneous
  Country: JP (occurrence: JP)
  Receive Date: 20131119
  Receipt Date: 20131129
  Transmission Date: 20140711
  Serious: Yes (Death)
  Sender: FDA-Public Use
  Company Number: JP-ALEXION PHARMACEUTICALS INC.-A201303245

PATIENT
  Age: 4 Year
  Sex: Female

DRUGS (2)
  1. SOLIRIS [Suspect]
     Indication: HAEMOLYTIC URAEMIC SYNDROME
     Dosage: 600 MG, SINGLE
     Route: 042
     Dates: start: 20130928, end: 20130928
  2. SOLIRIS [Suspect]
     Dosage: 300 MG, SINGLE
     Route: 042
     Dates: start: 20131004, end: 20131004

REACTIONS (2)
  - Neuroblastoma [Fatal]
  - Condition aggravated [Fatal]
